FAERS Safety Report 10415868 (Version 2)
Quarter: 2014Q3

REPORT INFORMATION
  Report Type: Spontaneous
  Country: BR (occurrence: BR)
  Receive Date: 20140828
  Receipt Date: 20140925
  Transmission Date: 20150326
  Serious: Yes (Hospitalization, Other)
  Sender: FDA-Public Use
  Company Number: BR-PFIZER INC-2014237853

PATIENT
  Sex: Female

DRUGS (1)
  1. EFFEXOR XR [Suspect]
     Active Substance: VENLAFAXINE HYDROCHLORIDE
     Indication: MENTAL DISORDER
     Dosage: STRENGTH 150 MG, UNK
     Route: 048
     Dates: end: 20140820

REACTIONS (6)
  - Labyrinthitis [Unknown]
  - Syncope [Unknown]
  - Head injury [Unknown]
  - Dizziness [Not Recovered/Not Resolved]
  - Fall [Unknown]
  - Viral infection [Unknown]

NARRATIVE: CASE EVENT DATE: 20140820
